FAERS Safety Report 22290439 (Version 1)
Quarter: 2023Q2

REPORT INFORMATION
  Report Type: Spontaneous
  Country: US (occurrence: US)
  Receive Date: 20230505
  Receipt Date: 20230505
  Transmission Date: 20230722
  Serious: No
  Sender: FDA-Public Use
  Company Number: US-BIOMARINAP-US-2023-150052

PATIENT

DRUGS (1)
  1. NAGLAZYME [Suspect]
     Active Substance: GALSULFASE
     Indication: Mucopolysaccharidosis VI
     Dosage: 14 MILLIGRAM, QW
     Route: 042

REACTIONS (1)
  - Rhinorrhoea [Recovered/Resolved with Sequelae]

NARRATIVE: CASE EVENT DATE: 20230425
